FAERS Safety Report 8614051 (Version 3)
Quarter: 2013Q4

REPORT INFORMATION
  Report Type: Spontaneous
  Country: GB (occurrence: GB)
  Receive Date: 20120530
  Receipt Date: 20131031
  Transmission Date: 20140711
  Serious: Yes (Hospitalization, Congenital Anomaly)
  Sender: FDA-Public Use
  Company Number: GB-009507513-2012SP027653

PATIENT
  Age: 6 Week
  Sex: Female

DRUGS (1)
  1. NEXPLANON [Suspect]
     Indication: CONTRACEPTION
     Dosage: UNK
     Route: 064
     Dates: start: 20110613

REACTIONS (2)
  - Blindness congenital [Unknown]
  - Foetal exposure during pregnancy [Unknown]
